FAERS Safety Report 5165184-9 (Version None)
Quarter: 2006Q4

REPORT INFORMATION
  Report Type: 
  Country: None (occurrence: None)
  Receive Date: 20061127
  Receipt Date: 20061113
  Transmission Date: 20070319
  Serious: Yes (Other)
  Sender: FDA-Public Use
  Company Number: 2006S1000259

PATIENT
  Age: 79 Year
  Sex: Male

DRUGS (6)
  1. ACITRETIN [Suspect]
     Indication: PSORIASIS
     Dosage: 25 MG QD PO ; 25 MG PO
     Route: 048
     Dates: start: 20060101, end: 20060401
  2. ACITRETIN [Suspect]
     Indication: PSORIASIS
     Dosage: 25 MG QD PO ; 25 MG PO
     Route: 048
     Dates: start: 20060308, end: 20060401
  3. WARFARIN SODIUM [Concomitant]
  4. SIMVASTATIN [Concomitant]
  5. LISINOPRIL [Concomitant]
  6. VALSARTAN [Concomitant]

REACTIONS (3)
  - ARTHRITIS [None]
  - CONDITION AGGRAVATED [None]
  - INTERNATIONAL NORMALISED RATIO INCREASED [None]
